FAERS Safety Report 25273458 (Version 2)
Quarter: 2025Q2

REPORT INFORMATION
  Report Type: Spontaneous
  Country: FR (occurrence: FR)
  Receive Date: 20250506
  Receipt Date: 20250619
  Transmission Date: 20250716
  Serious: Yes (Hospitalization)
  Sender: BAYER HEALTHCARE PHARMACEUTICALS INC.
  Company Number: None

PATIENT
  Age: 17 Year
  Sex: Male
  Weight: 37 kg

DRUGS (6)
  1. CIPROFLOXACIN LACTATE [Suspect]
     Active Substance: CIPROFLOXACIN LACTATE
     Indication: Pyelonephritis acute
     Dosage: 800 MG, QD
     Route: 042
     Dates: start: 20250411, end: 20250418
  2. AMIKACIN [Suspect]
     Active Substance: AMIKACIN
     Indication: Pyelonephritis
     Dosage: 800 MG, QD
     Route: 042
     Dates: start: 20250415, end: 20250420
  3. AUGMENTIN [Concomitant]
     Active Substance: AMOXICILLIN\CLAVULANATE POTASSIUM
  4. CLAFORAN [Concomitant]
     Active Substance: CEFOTAXIME SODIUM
  5. FLAGYL [Concomitant]
     Active Substance: METRONIDAZOLE\METRONIDAZOLE HYDROCHLORIDE
  6. ESOMEPRAZOLE MAGNESIUM [Concomitant]
     Active Substance: ESOMEPRAZOLE MAGNESIUM

REACTIONS (1)
  - Arthritis [Recovering/Resolving]

NARRATIVE: CASE EVENT DATE: 20250418
